FAERS Safety Report 9792156 (Version 1)
Quarter: 2014Q1

REPORT INFORMATION
  Report Type: Spontaneous
  Country: FR (occurrence: FR)
  Receive Date: 20140102
  Receipt Date: 20140102
  Transmission Date: 20141002
  Serious: Yes (Life-Threatening)
  Sender: FDA-Public Use
  Company Number: FR-SA-2013SA134137

PATIENT
  Age: 11 Month
  Sex: Female

DRUGS (27)
  1. COROTROPE [Suspect]
     Indication: PRODUCT USED FOR UNKNOWN INDICATION
     Route: 042
     Dates: start: 20131104, end: 20131105
  2. SEVORANE [Suspect]
     Indication: PRODUCT USED FOR UNKNOWN INDICATION
     Route: 055
     Dates: start: 20131104, end: 20131104
  3. CEFAZOLIN [Suspect]
     Indication: PRODUCT USED FOR UNKNOWN INDICATION
     Route: 042
     Dates: start: 20131104, end: 20131105
  4. OMEPRAZOLE [Suspect]
     Indication: PRODUCT USED FOR UNKNOWN INDICATION
     Route: 042
     Dates: start: 20131104, end: 20131105
  5. PARACETAMOL [Concomitant]
     Route: 042
     Dates: start: 20131104, end: 20131106
  6. FUROSEMIDE [Concomitant]
     Dates: end: 20131103
  7. FUROSEMIDE [Concomitant]
     Dates: start: 20131104
  8. SPIRONOLACTONE [Concomitant]
     Dates: end: 20131103
  9. SPIRONOLACTONE [Concomitant]
  10. SPECIAFOLDINE [Concomitant]
     Dates: end: 20131103
  11. FERROSTRANE [Concomitant]
     Dates: end: 20131103
  12. UVESTEROL [Concomitant]
     Dates: end: 20131103
  13. ATRACURIUM [Concomitant]
     Dates: start: 20131104, end: 20131104
  14. ATRACURIUM [Concomitant]
     Dates: start: 20131106
  15. MIDAZOLAM [Concomitant]
     Dates: start: 20131104, end: 20131104
  16. MIDAZOLAM [Concomitant]
     Dates: start: 20131106
  17. SUFENTANIL [Concomitant]
     Dates: start: 20131104, end: 20131104
  18. SUFENTANIL [Concomitant]
     Dates: start: 20131106
  19. EXACYL [Concomitant]
     Dates: start: 20131104
  20. HEPARINE CHOAY [Concomitant]
     Dates: start: 20131104
  21. DEXAMETHASONE [Concomitant]
     Dates: start: 20131104, end: 20131104
  22. PROTAMINE [Concomitant]
     Dates: start: 20131104
  23. FACTOR VIII INHIBITOR BYPASSING FRACTION [Concomitant]
     Dates: start: 20131104
  24. ADRENALINE [Concomitant]
     Dates: start: 20131104, end: 20131104
  25. ADRENALINE [Concomitant]
     Dosage: SPRAY
     Dates: start: 20131104, end: 20131104
  26. SOLUDECADRON [Concomitant]
     Dosage: FORM: SPRAY
     Dates: start: 20131104, end: 20131104
  27. PULMICORT [Concomitant]
     Dosage: FORM:SPRAY
     Dates: start: 20131104, end: 20131106

REACTIONS (5)
  - Hepatitis acute [Recovered/Resolved]
  - Hepatic failure [Recovered/Resolved]
  - Pyrexia [Recovered/Resolved]
  - Blood creatine phosphokinase increased [Recovered/Resolved]
  - Blood lactate dehydrogenase increased [Recovered/Resolved]
